FAERS Safety Report 24614037 (Version 1)
Quarter: 2024Q4

REPORT INFORMATION
  Report Type: Spontaneous
  Country: US (occurrence: None)
  Receive Date: 20241113
  Receipt Date: 20241113
  Transmission Date: 20250114
  Serious: No
  Sender: Public
  Company Number: None

PATIENT
  Age: 47 Year
  Sex: Male
  Weight: 168 kg

DRUGS (1)
  1. PERFLUTREN [Suspect]
     Active Substance: PERFLUTREN
     Indication: Vascular imaging
     Dosage: OTHER FREQUENCY : ONCE;?
     Route: 042
     Dates: start: 20241107, end: 20241107

REACTIONS (1)
  - Back pain [None]
